FAERS Safety Report 10732563 (Version 1)
Quarter: 2015Q1

REPORT INFORMATION
  Report Type: Spontaneous
  Country: JP (occurrence: None)
  Receive Date: 20150120
  Receipt Date: 20150120
  Transmission Date: 20150721
  Serious: Yes (Hospitalization)
  Sender: FDA-Public Use
  Company Number: FK201500191

PATIENT
  Age: 70 Year
  Sex: Female

DRUGS (8)
  1. IRINOTECAN [Suspect]
     Active Substance: IRINOTECAN
     Indication: METASTASES TO LIVER
     Dosage: 180 MG/M2, ON DAY 1
  2. OXALIPLATIN. [Suspect]
     Active Substance: OXALIPLATIN
     Indication: PANCREATIC CARCINOMA
     Dosage: 85 MG/M2, ON DAY 1?
  3. OXALIPLATIN. [Suspect]
     Active Substance: OXALIPLATIN
     Indication: METASTASES TO LIVER
     Dosage: 85 MG/M2, ON DAY 1?
  4. FLUOROURACIL. [Suspect]
     Active Substance: FLUOROURACIL
     Indication: METASTASES TO LIVER
     Dosage: 400 MG/M2, ON DAY 1, INTRAVENOUS BOLUS?
     Route: 040
  5. LEUCOVORIN CALCIUM. [Suspect]
     Active Substance: LEUCOVORIN CALCIUM
     Indication: PANCREATIC CARCINOMA
     Dosage: 200 MG/M2, ON DAY 1
  6. IRINOTECAN [Suspect]
     Active Substance: IRINOTECAN
     Indication: PANCREATIC CARCINOMA
     Dosage: 180 MG/M2, ON DAY 1
  7. FLUOROURACIL. [Suspect]
     Active Substance: FLUOROURACIL
     Indication: PANCREATIC CARCINOMA
     Dosage: 400 MG/M2, ON DAY 1, INTRAVENOUS BOLUS?
     Route: 040
  8. LEUCOVORIN CALCIUM. [Suspect]
     Active Substance: LEUCOVORIN CALCIUM
     Indication: METASTASES TO LIVER
     Dosage: 200 MG/M2, ON DAY 1

REACTIONS (10)
  - Anion gap increased [None]
  - Asterixis [None]
  - No therapeutic response [None]
  - Blood urea increased [None]
  - Hyperammonaemic encephalopathy [None]
  - Blood glucose increased [None]
  - Alanine aminotransferase increased [None]
  - Blood lactic acid increased [None]
  - Aspartate aminotransferase increased [None]
  - Blood lactate dehydrogenase increased [None]
